FAERS Safety Report 8331002-0 (Version None)
Quarter: 2012Q2

REPORT INFORMATION
  Report Type: 
  Country: None (occurrence: None)
  Receive Date: 20120502
  Receipt Date: 20120406
  Transmission Date: 20120825
  Serious: No
  Sender: FDA-Public Use
  Company Number: US-AMGEN-USASP2012022137

PATIENT
  Sex: Female

DRUGS (1)
  1. ENBREL [Suspect]
     Indication: RHEUMATOID ARTHRITIS
     Dosage: UNK
     Dates: start: 20070501, end: 20120301

REACTIONS (4)
  - GASTROINTESTINAL BACTERIAL INFECTION [None]
  - JOINT WARMTH [None]
  - ARTHRALGIA [None]
  - JOINT SWELLING [None]
